FAERS Safety Report 5916013-4 (Version None)
Quarter: 2008Q4

REPORT INFORMATION
  Report Type: 
  Country: None (occurrence: None)
  Receive Date: 20081013
  Receipt Date: 20080929
  Transmission Date: 20090506
  Serious: Yes (Death, Hospitalization)
  Sender: FDA-Public Use
  Company Number: US-JNJFOC-20080101527

PATIENT
  Sex: Female
  Weight: 63.05 kg

DRUGS (1)
  1. REMICADE [Suspect]
     Indication: DRUG USE FOR UNKNOWN INDICATION
     Route: 042

REACTIONS (4)
  - ACUTE RESPIRATORY FAILURE [None]
  - CERVICAL VERTEBRAL FRACTURE [None]
  - FALL [None]
  - RESPIRATORY DISTRESS [None]
